FAERS Safety Report 10144712 (Version 1)
Quarter: 2014Q2

REPORT INFORMATION
  Report Type: Spontaneous
  Country: US (occurrence: US)
  Receive Date: 20140430
  Receipt Date: 20140430
  Transmission Date: 20141212
  Serious: No
  Sender: FDA-Public Use
  Company Number: US-SANOFI-AVENTIS-2013SA085210

PATIENT
  Age: 19 Month
  Sex: Male

DRUGS (1)
  1. ENOXAPARIN SODIUM - WINTHROP [Suspect]
     Indication: ARTERIAL THROMBOSIS
     Dosage: TAKEN FROM- 2 MONTHS AGO
     Route: 065

REACTIONS (3)
  - Epistaxis [Not Recovered/Not Resolved]
  - Anger [Recovered/Resolved]
  - Haematochezia [Not Recovered/Not Resolved]
